FAERS Safety Report 7076975-1 (Version None)
Quarter: 2010Q4

REPORT INFORMATION
  Report Type: 
  Country: None (occurrence: None)
  Receive Date: 20101022
  Receipt Date: 20101006
  Transmission Date: 20110411
  Serious: Yes (Other)
  Sender: FDA-Public Use
  Company Number: ACO_01894_2010

PATIENT
  Sex: Female
  Weight: 113.3993 kg

DRUGS (18)
  1. AMPYRA [Suspect]
     Indication: GAIT DISTURBANCE
     Dosage: 10 MG BID ORAL
     Route: 048
     Dates: start: 20100701, end: 20100929
  2. FUROSEMIDE [Concomitant]
  3. ENABLEX [Concomitant]
  4. LEVOTHYROXINE [Concomitant]
  5. HYDROCODONE [Concomitant]
  6. NEURONTIN [Concomitant]
  7. WELLBUTRIN [Concomitant]
  8. CITALOPRAM HYDROBROMIDE [Concomitant]
  9. MORPHINE SULFATE [Concomitant]
  10. CLONAZEPAM [Concomitant]
  11. RANITIDINE [Concomitant]
  12. CYCLOBENZAPRINE [Concomitant]
  13. OMEPRAZOLE [Concomitant]
  14. AMLODIPINE [Concomitant]
  15. SOMA [Concomitant]
  16. TRAZODONE [Concomitant]
  17. ARICEPT [Concomitant]
  18. BACLOFEN [Concomitant]

REACTIONS (10)
  - CONDITION AGGRAVATED [None]
  - JOINT SWELLING [None]
  - MOBILITY DECREASED [None]
  - OEDEMA PERIPHERAL [None]
  - PAIN IN EXTREMITY [None]
  - TREMOR [None]
  - UNEVALUABLE EVENT [None]
  - VISION BLURRED [None]
  - VISUAL IMPAIRMENT [None]
  - WEIGHT INCREASED [None]
